FAERS Safety Report 5818534-1 (Version None)
Quarter: 2008Q3

REPORT INFORMATION
  Report Type: 
  Country: None (occurrence: None)
  Receive Date: 20080717
  Receipt Date: 20080711
  Transmission Date: 20090109
  Serious: Yes (Other)
  Sender: FDA-Public Use
  Company Number: 2008SP011499

PATIENT
  Sex: Male

DRUGS (1)
  1. CLARITIN-D 24 HOUR [Suspect]
     Indication: COUGH
     Dosage: 10 MG; ONCE; UNK
     Dates: start: 20080603

REACTIONS (4)
  - ABDOMINAL PAIN UPPER [None]
  - ANURIA [None]
  - BACK PAIN [None]
  - DYSURIA [None]
